FAERS Safety Report 18344950 (Version 1)
Quarter: 2020Q4

REPORT INFORMATION
  Report Type: Spontaneous
  Country: US (occurrence: US)
  Receive Date: 20201005
  Receipt Date: 20201005
  Transmission Date: 20210114
  Serious: Yes (Other)
  Sender: FDA-Public Use
  Company Number: US-NOVA LABORATORIES LIMITED-2092411

PATIENT

DRUGS (1)
  1. PURIXAN [Suspect]
     Active Substance: MERCAPTOPURINE

REACTIONS (1)
  - Pancreatitis [Recovered/Resolved]
